FAERS Safety Report 4565173-9 (Version None)
Quarter: 2005Q1

REPORT INFORMATION
  Report Type: 
  Country: None (occurrence: None)
  Receive Date: 20050127
  Receipt Date: 20050127
  Transmission Date: 20050727
  Serious: Yes (Other)
  Sender: FDA-Public Use
  Company Number: None

PATIENT
  Sex: Female
  Weight: 49.8957 kg

DRUGS (5)
  1. SEROQUEL [Suspect]
     Indication: BIPOLAR DISORDER
     Dosage: SEE ITEM B5
     Dates: start: 20020101
  2. SEROQUEL [Suspect]
     Indication: SCHIZOAFFECTIVE DISORDER
     Dosage: SEE ITEM B5
     Dates: start: 20020101
  3. ZYPREXA [Concomitant]
  4. COGENTIN [Concomitant]
  5. BENADRYL [Concomitant]

REACTIONS (9)
  - DIFFICULTY IN WALKING [None]
  - DIZZINESS [None]
  - DYSARTHRIA [None]
  - LOSS OF CONSCIOUSNESS [None]
  - NAUSEA [None]
  - OCULAR HYPERAEMIA [None]
  - RHINORRHOEA [None]
  - SOMNOLENCE [None]
  - VOMITING [None]
